FAERS Safety Report 8001424-6 (Version None)
Quarter: 2011Q4

REPORT INFORMATION
  Report Type: 
  Country: None (occurrence: None)
  Receive Date: 20111222
  Receipt Date: 20111214
  Transmission Date: 20120403
  Serious: Yes (Hospitalization, Other)
  Sender: FDA-Public Use
  Company Number: US-SANOFI-AVENTIS-2011SA079578

PATIENT
  Age: 62 Year
  Sex: Male

DRUGS (3)
  1. AMBIEN CR [Suspect]
  2. SERTRALINE HYDROCHLORIDE [Suspect]
  3. AMBIEN CR [Suspect]
     Route: 048
     Dates: start: 20090101

REACTIONS (17)
  - SKIN WARM [None]
  - TESTICULAR PAIN [None]
  - DRY EYE [None]
  - TESTICULAR CYST [None]
  - MUSCULOSKELETAL PAIN [None]
  - WOUND INFECTION FUNGAL [None]
  - GLAUCOMA [None]
  - HYDROCELE [None]
  - MEMORY IMPAIRMENT [None]
  - SKIN SWELLING [None]
  - PAIN IN EXTREMITY [None]
  - HYPERAESTHESIA [None]
  - CORONARY ARTERY OCCLUSION [None]
  - PAIN OF SKIN [None]
  - ARTHRITIS [None]
  - NECK PAIN [None]
  - BACK PAIN [None]
